FAERS Safety Report 19394622 (Version 1)
Quarter: 2021Q2

REPORT INFORMATION
  Report Type: Spontaneous
  Country: CN (occurrence: CN)
  Receive Date: 20210609
  Receipt Date: 20210609
  Transmission Date: 20210717
  Serious: Yes (Other)
  Sender: FDA-Public Use
  Company Number: CN-ORGANON-O2106CHN000677

PATIENT
  Age: 21 Month

DRUGS (1)
  1. SINGULAIR [Suspect]
     Active Substance: MONTELUKAST SODIUM
     Dosage: 4 MILLIGRAM, ADMINISTERED FOR 20 DAYS
     Route: 048
     Dates: start: 202105

REACTIONS (3)
  - Product use issue [Unknown]
  - Intentional self-injury [Unknown]
  - Mental disorder [Unknown]

NARRATIVE: CASE EVENT DATE: 202105
